FAERS Safety Report 19421191 (Version 1)
Quarter: 2021Q2

REPORT INFORMATION
  Report Type: Spontaneous
  Country: US (occurrence: US)
  Receive Date: 20210615
  Receipt Date: 20210615
  Transmission Date: 20210717
  Serious: Yes (Other)
  Sender: FDA-Public Use
  Company Number: None

PATIENT
  Age: 61 Year
  Sex: Male

DRUGS (2)
  1. SULFUR HEXAFLUORIDE LIPID?TYPE A MICROSPHERES [Suspect]
     Active Substance: SULFUR HEXAFLUORIDE
     Indication: DIAGNOSTIC PROCEDURE
     Dosage: ?          OTHER FREQUENCY:ONCE;?
     Route: 042
     Dates: start: 20210608, end: 20210608
  2. MODERNA COVID?19 VACCINE [Suspect]
     Active Substance: CX-024414
     Dates: start: 20210417, end: 20210417

REACTIONS (9)
  - Malaise [None]
  - Pruritus [None]
  - Erythema [None]
  - Vomiting [None]
  - Flushing [None]
  - Asthenia [None]
  - Hypersensitivity [None]
  - Nausea [None]
  - Vaccination complication [None]

NARRATIVE: CASE EVENT DATE: 20210608
